FAERS Safety Report 7497776-6 (Version None)
Quarter: 2011Q2

REPORT INFORMATION
  Report Type: 
  Country: None (occurrence: None)
  Receive Date: 20110524
  Receipt Date: 20110518
  Transmission Date: 20111010
  Serious: Yes (Death, Hospitalization, Other)
  Sender: FDA-Public Use
  Company Number: US-BRISTOL-MYERS SQUIBB COMPANY-15555113

PATIENT
  Age: 76 Year
  Sex: Female
  Weight: 54 kg

DRUGS (22)
  1. BENADRYL [Concomitant]
     Dates: start: 20100628
  2. LISINOPRIL [Concomitant]
  3. HYDROCHLOROTHIAZIDE [Concomitant]
     Dates: start: 20100608
  4. DECADRON [Concomitant]
     Indication: VOMITING
     Dates: start: 20100628
  5. ASPIRIN [Concomitant]
     Dates: start: 20100408
  6. ALBUTEROL SULFATE AUTOHALER [Concomitant]
     Dates: start: 20100408
  7. VISTARIL [Concomitant]
     Dates: start: 20100412
  8. PACLITAXEL [Suspect]
     Indication: NON-SMALL CELL LUNG CANCER
     Route: 042
     Dates: start: 20100628, end: 20100628
  9. ZOMETA [Concomitant]
     Indication: BONE PAIN
     Dates: start: 20100628
  10. ZOMETA [Concomitant]
     Indication: METASTASIS
     Dates: start: 20100628
  11. ZANTAC [Concomitant]
     Indication: GASTROOESOPHAGEAL REFLUX DISEASE
     Dates: start: 20100628
  12. AMLODIPINE BESYLATE [Concomitant]
  13. MEGACE [Concomitant]
     Dates: start: 20100608
  14. ADVAIR DISKUS 100/50 [Concomitant]
  15. NUCYNTA [Concomitant]
  16. POTASSIUM CHLORIDE [Concomitant]
  17. TEMAZ [Concomitant]
  18. HYDROXYZINE [Concomitant]
  19. ZOFRAN [Concomitant]
     Dates: start: 20100628
  20. RESTORIL [Concomitant]
     Dates: start: 20100608
  21. CARBOPLATIN [Suspect]
     Indication: NON-SMALL CELL LUNG CANCER
     Dosage: 6DF:6AUC
     Route: 042
     Dates: start: 20100628, end: 20100628
  22. BEVACIZUMAB [Suspect]
     Indication: NON-SMALL CELL LUNG CANCER
     Route: 042
     Dates: start: 20100628, end: 20100628

REACTIONS (6)
  - CARDIO-RESPIRATORY ARREST [None]
  - VOMITING [None]
  - DEHYDRATION [None]
  - NEUTROPENIA [None]
  - DIARRHOEA [None]
  - HYPOTENSION [None]
